FAERS Safety Report 4353289-1 (Version None)
Quarter: 2004Q2

REPORT INFORMATION
  Report Type: 
  Country: None (occurrence: None)
  Receive Date: 20040504
  Receipt Date: 20040504
  Transmission Date: 20050107
  Serious: Yes (Other)
  Sender: FDA-Public Use
  Company Number: None

PATIENT
  Age: 55 Year
  Sex: Female
  Weight: 88.4514 kg

DRUGS (2)
  1. PAXIL [Suspect]
     Indication: ANXIETY
     Dosage: 60 MG/DAY BY MOUTH ORAL
     Route: 048
     Dates: start: 19960730, end: 20040309
  2. PAXIL [Suspect]
     Indication: DEPRESSION
     Dosage: 60 MG/DAY BY MOUTH ORAL
     Route: 048
     Dates: start: 19960730, end: 20040309

REACTIONS (15)
  - ANGER [None]
  - CHEST PAIN [None]
  - CRYING [None]
  - DEPRESSION [None]
  - DRUG INEFFECTIVE [None]
  - DRUG WITHDRAWAL SYNDROME [None]
  - FATIGUE [None]
  - INDIFFERENCE [None]
  - LETHARGY [None]
  - LOSS OF EMPLOYMENT [None]
  - LOSS OF LIBIDO [None]
  - MOOD SWINGS [None]
  - NIGHTMARE [None]
  - PYREXIA [None]
  - WEIGHT INCREASED [None]
